FAERS Safety Report 10541983 (Version 3)
Quarter: 2015Q1

REPORT INFORMATION
  Report Type: Spontaneous
  Country: US (occurrence: None)
  Receive Date: 20141022
  Receipt Date: 20150126
  Transmission Date: 20150720
  Serious: Yes (Other)
  Sender: FDA-Public Use
  Company Number: US-001355

PATIENT
  Age: 57 Year
  Sex: Female

DRUGS (3)
  1. GATTEX [Suspect]
     Active Substance: TEDUGLUTIDE\WATER
     Indication: SHORT-BOWEL SYNDROME
     Dosage: DF
     Route: 058
  2. SOLUTIONS FOR PARENTERAL NUTRITION [Concomitant]
     Active Substance: AMINO ACIDS\DEXTROSE\ELECTROLYTES NOS
  3. ANTIHYPERTENSIVES [Concomitant]
     Active Substance: UNSPECIFIED INGREDIENT

REACTIONS (13)
  - Tooth fracture [None]
  - Sensory disturbance [None]
  - Anaemia [None]
  - Peripheral swelling [None]
  - Hypotension [None]
  - Hepatic steatosis [None]
  - Post procedural complication [None]
  - Tooth disorder [None]
  - Pedal pulse decreased [None]
  - Weight decreased [None]
  - Paraesthesia [None]
  - Pain in extremity [None]
  - Feeling cold [None]

NARRATIVE: CASE EVENT DATE: 20140101
